FAERS Safety Report 4521252-3 (Version None)
Quarter: 2004Q4

REPORT INFORMATION
  Report Type: 
  Country: None (occurrence: None)
  Receive Date: 20041203
  Receipt Date: 20041124
  Transmission Date: 20050328
  Serious: Yes (Life-Threatening, Hospitalization)
  Sender: FDA-Public Use
  Company Number: 2004PK01733

PATIENT
  Age: 38 Year
  Sex: Female
  Weight: 90 kg

DRUGS (8)
  1. NEXIUM [Suspect]
     Dosage: 40 MG DAILY PO
     Route: 048
     Dates: start: 20040701, end: 20040820
  2. BACTRIM [Suspect]
     Dosage: 800 MG DAILY PO
     Route: 048
     Dates: start: 20040715, end: 20040816
  3. ENDOXAN [Suspect]
     Dosage: 150 MG DAILY PO
     Route: 048
     Dates: start: 20040715, end: 20040817
  4. MARCOUMAR [Suspect]
     Dosage: 3 MG QD PO
     Route: 048
     Dates: start: 20040727, end: 20040815
  5. BELOC ZOK [Concomitant]
  6. PREDNISON [Concomitant]
  7. ATORVASTATIN CALCIUM [Concomitant]
  8. TOREM [Concomitant]

REACTIONS (2)
  - HEPATIC FAILURE [None]
  - HEPATITIS [None]
